FAERS Safety Report 15390148 (Version 1)
Quarter: 2018Q3

REPORT INFORMATION
  Report Type: Spontaneous
  Country: GB (occurrence: GB)
  Receive Date: 20180917
  Receipt Date: 20180917
  Transmission Date: 20181010
  Serious: Yes (Other)
  Sender: FDA-Public Use
  Company Number: GB-AUROBINDO-AUR-APL-2018-046008

PATIENT
  Age: 19 Year
  Sex: Female
  Weight: 77.11 kg

DRUGS (1)
  1. CITALOPRAM [Suspect]
     Active Substance: CITALOPRAM HYDROBROMIDE
     Indication: PRODUCT USED FOR UNKNOWN INDICATION
     Dosage: 20 MILLIGRAM
     Route: 048
     Dates: start: 20180614

REACTIONS (5)
  - Depressed mood [Recovering/Resolving]
  - Dizziness postural [Not Recovered/Not Resolved]
  - Syncope [Recovering/Resolving]
  - Flat affect [Recovered/Resolved]
  - Fatigue [Not Recovered/Not Resolved]
